FAERS Safety Report 17865694 (Version 1)
Quarter: 2020Q2

REPORT INFORMATION
  Report Type: Spontaneous
  Country: FR (occurrence: FR)
  Receive Date: 20200605
  Receipt Date: 20200605
  Transmission Date: 20200714
  Serious: Yes (Hospitalization)
  Sender: FDA-Public Use
  Company Number: FR-BRISTOL-MYERS SQUIBB COMPANY-BMS-2020-043161

PATIENT
  Age: 25 Year
  Sex: Male

DRUGS (2)
  1. WARFARIN SODIUM. [Suspect]
     Active Substance: WARFARIN SODIUM
     Indication: ARTERIAL THROMBOSIS
     Dosage: 7 MILLIGRAM, 1 DAY
     Route: 048
     Dates: start: 20200304, end: 20200503
  2. INNOHEP [Suspect]
     Active Substance: TINZAPARIN SODIUM
     Indication: ARTERIAL THROMBOSIS
     Dosage: 12000 INTERNATIONAL UNIT, 1 DAY
     Route: 058
     Dates: start: 202002, end: 202003

REACTIONS (1)
  - Priapism [Recovered/Resolved with Sequelae]

NARRATIVE: CASE EVENT DATE: 20200503
